FAERS Safety Report 6664532-8 (Version None)
Quarter: 2010Q2

REPORT INFORMATION
  Report Type: 
  Country: None (occurrence: None)
  Receive Date: 20100401
  Receipt Date: 20100326
  Transmission Date: 20101027
  Serious: Yes (Hospitalization)
  Sender: FDA-Public Use
  Company Number: ZA-GILEAD-2010-0028161

PATIENT
  Sex: Female
  Weight: 56.977 kg

DRUGS (13)
  1. TRUVADA [Suspect]
     Indication: HIV INFECTION
     Dates: start: 20100224
  2. BLINDED MARAVIROC [Suspect]
     Indication: HIV INFECTION
     Dates: start: 20100224
  3. EFAVIRENZ [Suspect]
     Indication: HIV INFECTION
     Dates: start: 20100224
  4. MAXOLON [Concomitant]
     Dates: start: 20100208, end: 20100224
  5. BUSCOPAN [Concomitant]
  6. STEMETIL [Concomitant]
  7. BACTRIM [Concomitant]
  8. NYSTATIN [Concomitant]
  9. PERSIVATE [Concomitant]
  10. AQUEOUS CREAM [Concomitant]
  11. IMODIUM [Concomitant]
  12. SPERSALLERG [Concomitant]
  13. TUBERCULIN NOS [Concomitant]

REACTIONS (1)
  - GASTROENTERITIS [None]
